FAERS Safety Report 10103046 (Version 2)
Quarter: 2014Q2

REPORT INFORMATION
  Report Type: Spontaneous
  Country: US (occurrence: US)
  Receive Date: 20140424
  Receipt Date: 20140424
  Transmission Date: 20141212
  Serious: Yes (Hospitalization)
  Sender: FDA-Public Use
  Company Number: US-BRISTOL-MYERS SQUIBB COMPANY-20099362

PATIENT
  Age: 87 Year
  Sex: Male
  Weight: 70.8 kg

DRUGS (5)
  1. ELIQUIS [Suspect]
     Indication: THROMBOSIS PROPHYLAXIS
     Dates: start: 20131027, end: 20140107
  2. ELIQUIS [Suspect]
     Indication: CEREBROVASCULAR ACCIDENT PROPHYLAXIS
     Dates: start: 20131027, end: 20140107
  3. CARVEDILOL [Concomitant]
  4. FUROSEMIDE [Concomitant]
  5. SERTRALINE [Concomitant]

REACTIONS (1)
  - Upper gastrointestinal haemorrhage [Recovered/Resolved]
